FAERS Safety Report 4401689-3 (Version None)
Quarter: 2004Q3

REPORT INFORMATION
  Report Type: 
  Country: None (occurrence: None)
  Receive Date: 20040719
  Receipt Date: 20040705
  Transmission Date: 20050211
  Serious: Yes (Life-Threatening, Hospitalization)
  Sender: FDA-Public Use
  Company Number: IT-GLAXOSMITHKLINE-B0338822A

PATIENT
  Age: 63 Year
  Sex: Female

DRUGS (3)
  1. AUGMENTIN '125' [Suspect]
     Indication: PHARYNGITIS BACTERIAL
     Dosage: 1200MG TWICE PER DAY
     Route: 042
     Dates: start: 20040625, end: 20040625
  2. CEFTRIAXONE [Concomitant]
     Indication: PHARYNGITIS BACTERIAL
     Route: 030
     Dates: start: 20040601
  3. CLARITHROMYCIN [Concomitant]
     Indication: PHARYNGITIS BACTERIAL
     Route: 048
     Dates: start: 20040601

REACTIONS (3)
  - DRUG HYPERSENSITIVITY [None]
  - RASH MACULO-PAPULAR [None]
  - RESPIRATORY FAILURE [None]
